FAERS Safety Report 24644317 (Version 1)
Quarter: 2024Q4

REPORT INFORMATION
  Report Type: Report from Study
  Country: US (occurrence: US)
  Receive Date: 20241120
  Receipt Date: 20241120
  Transmission Date: 20250114
  Serious: Yes (Other)
  Sender: ABBVIE
  Company Number: US-ABBVIE-6007314

PATIENT
  Age: 43 Year
  Sex: Female

DRUGS (1)
  1. HUMIRA [Suspect]
     Active Substance: ADALIMUMAB
     Indication: Rheumatoid arthritis
     Dosage: STOP DATE: 2024
     Route: 058
     Dates: start: 20240501

REACTIONS (6)
  - Hidradenitis [Unknown]
  - Drug ineffective [Not Recovered/Not Resolved]
  - Injection site rash [Not Recovered/Not Resolved]
  - Autoimmune disorder [Unknown]
  - Sweat gland infection [Not Recovered/Not Resolved]
  - Pain [Unknown]

NARRATIVE: CASE EVENT DATE: 20240101
